FAERS Safety Report 15856220 (Version 3)
Quarter: 2019Q1

REPORT INFORMATION
  Report Type: Report from Study
  Country: None (occurrence: US)
  Receive Date: 20190123
  Receipt Date: 20190303
  Transmission Date: 20190417
  Serious: Yes (Other)
  Sender: FDA-Public Use
  Company Number: US-ABBVIE-18K-163-2556393-00

PATIENT
  Age: 63 Year
  Sex: Male
  Weight: 86.26 kg

DRUGS (1)
  1. HUMIRA [Suspect]
     Active Substance: ADALIMUMAB
     Indication: PSORIASIS
     Route: 058
     Dates: start: 20180613

REACTIONS (4)
  - Back pain [Unknown]
  - Benign neoplasm of skin [Recovered/Resolved]
  - Drug effect incomplete [Recovering/Resolving]
  - Pain in extremity [Recovered/Resolved]

NARRATIVE: CASE EVENT DATE: 20181101
